FAERS Safety Report 8633189 (Version 5)
Quarter: 2012Q4

REPORT INFORMATION
  Report Type: 
  Country: US (occurrence: US)
  Receive Date: 20120612
  Receipt Date: 20120903
  Transmission Date: 20130627
  Serious: Yes (Hospitalization)
  Sender: FDA-Public Use
  Company Number: US-009507513-2012SP030917

PATIENT

DRUGS (2)
  1. TEMODAR [Suspect]
     Indication: BRAIN NEOPLASM
     Dosage: 140 mg, QD
     Route: 048
     Dates: start: 20120212, end: 201203
  2. KYTRIL [Concomitant]
     Dosage: UPDATE (19JUN2012): TABS 2?S

REACTIONS (2)
  - Urinary retention [Unknown]
  - Constipation [Recovering/Resolving]
